FAERS Safety Report 23787479 (Version 1)
Quarter: 2024Q2

REPORT INFORMATION
  Report Type: Other
  Country: US (occurrence: US)
  Receive Date: 20240426
  Receipt Date: 20240426
  Transmission Date: 20240716
  Serious: Yes (Other)
  Sender: FDA-Public Use
  Company Number: US-Fagron Sterile Services-2156067

PATIENT

DRUGS (1)
  1. CYCLOPENTOLATE\KETOROLAC\PHENYLEPHRINE\PROPARACAINE\TROPICAMIDE [Suspect]
     Active Substance: CYCLOPENTOLATE\KETOROLAC\PHENYLEPHRINE\PROPARACAINE\TROPICAMIDE

REACTIONS (1)
  - Adverse reaction [Recovered/Resolved]
